FAERS Safety Report 16200379 (Version 1)
Quarter: 2019Q2

REPORT INFORMATION
  Report Type: Spontaneous
  Country: US (occurrence: US)
  Receive Date: 20190416
  Receipt Date: 20190416
  Transmission Date: 20190711
  Serious: No
  Sender: FDA-Public Use
  Company Number: US-LUPIN PHARMACEUTICALS INC.-2019-00795

PATIENT
  Age: 23 Year
  Sex: Male
  Weight: 63.49 kg

DRUGS (1)
  1. RIFAMPIN CAPSULES USP, 300 MG [Suspect]
     Active Substance: RIFAMPIN
     Indication: TUBERCULOSIS
     Dosage: 300 MILLIGRAM, BID
     Route: 048
     Dates: start: 20190203

REACTIONS (5)
  - Nausea [Unknown]
  - Dermatitis allergic [Not Recovered/Not Resolved]
  - Faeces discoloured [Not Recovered/Not Resolved]
  - Chromaturia [Not Recovered/Not Resolved]
  - Discoloured vomit [Not Recovered/Not Resolved]

NARRATIVE: CASE EVENT DATE: 20190204
